FAERS Safety Report 16758417 (Version 1)
Quarter: 2019Q3

REPORT INFORMATION
  Report Type: Report from Study
  Country: ES (occurrence: ES)
  Receive Date: 20190830
  Receipt Date: 20190830
  Transmission Date: 20191005
  Serious: Yes (Hospitalization)
  Sender: FDA-Public Use
  Company Number: ES-TEVA-2019-ES-1098832

PATIENT
  Age: 36 Year
  Sex: Male

DRUGS (5)
  1. PREDNISONA (886A) [Suspect]
     Active Substance: PREDNISONE
     Indication: PROPHYLAXIS AGAINST TRANSPLANT REJECTION
     Dosage: 5 MG PER DAY
     Route: 048
     Dates: start: 20100622
  2. DOXAZOSINA (2387A) [Concomitant]
     Active Substance: DOXAZOSIN MESYLATE
     Indication: HYPERTENSION
     Dosage: 8 MG PER DAY
     Route: 048
     Dates: start: 20120417, end: 20180706
  3. EVEROLIMUS (2916A) [Interacting]
     Active Substance: EVEROLIMUS
     Indication: PROPHYLAXIS AGAINST TRANSPLANT REJECTION
     Dosage: 4 MG PER DAY
     Route: 048
     Dates: start: 20100622
  4. ROSUVASTATINA (8215A) [Concomitant]
     Active Substance: ROSUVASTATIN
     Indication: HYPERLIPIDAEMIA
     Route: 048
     Dates: end: 20180706
  5. MYFORTIC [Interacting]
     Active Substance: MYCOPHENOLATE SODIUM
     Indication: PROPHYLAXIS AGAINST TRANSPLANT REJECTION
     Dosage: 360 MG PER DAY
     Route: 048
     Dates: start: 20100622

REACTIONS (2)
  - Herpes zoster disseminated [Recovered/Resolved]
  - Drug interaction [Unknown]

NARRATIVE: CASE EVENT DATE: 20180702
